FAERS Safety Report 13455721 (Version 2)
Quarter: 2017Q2

REPORT INFORMATION
  Report Type: Spontaneous
  Country: US (occurrence: US)
  Receive Date: 20170418
  Receipt Date: 20170425
  Transmission Date: 20170830
  Serious: No
  Sender: FDA-Public Use
  Company Number: US-BAYER-2017-070331

PATIENT
  Age: 79 Year
  Sex: Female

DRUGS (1)
  1. CLIMARA PRO [Suspect]
     Active Substance: ESTRADIOL\LEVONORGESTREL
     Indication: HORMONE REPLACEMENT THERAPY
     Dosage: 0.045 MG/DAY ESTRADIOL AND 0.015 MG/DAY LEVONORGESTREL
     Route: 062

REACTIONS (4)
  - Application site ulcer [None]
  - Product coating issue [None]
  - Product adhesion issue [None]
  - Application site ulcer [Recovered/Resolved]

NARRATIVE: CASE EVENT DATE: 201704
